FAERS Safety Report 9807984 (Version 2)
Quarter: 2014Q1

REPORT INFORMATION
  Report Type: Report from Study
  Country: DE (occurrence: DE)
  Receive Date: 20140110
  Receipt Date: 20140316
  Transmission Date: 20141002
  Serious: Yes (Hospitalization, Other)
  Sender: FDA-Public Use
  Company Number: DE-JNJFOC-20140103555

PATIENT
  Age: 54 Year
  Sex: Female
  Weight: 68 kg

DRUGS (6)
  1. RIVAROXABAN [Suspect]
     Indication: EMBOLISM VENOUS
     Route: 048
     Dates: start: 20131202, end: 20131202
  2. RIVAROXABAN [Suspect]
     Indication: DEEP VEIN THROMBOSIS
     Route: 048
     Dates: start: 20131202, end: 20131202
  3. L-THYROXIN [Concomitant]
     Route: 065
     Dates: start: 2000
  4. BRIMONIDINE [Concomitant]
     Route: 065
     Dates: start: 2006
  5. HEPARIN-FRACTION [Concomitant]
     Route: 065
     Dates: start: 20131129
  6. MARCUMAR [Concomitant]
     Route: 065
     Dates: start: 20131203

REACTIONS (4)
  - Eyelid oedema [Recovered/Resolved]
  - Lip swelling [Recovered/Resolved]
  - Ear swelling [Recovered/Resolved]
  - Skin tightness [Recovered/Resolved]
